FAERS Safety Report 7327018-3 (Version None)
Quarter: 2011Q1

REPORT INFORMATION
  Report Type: 
  Country: None (occurrence: None)
  Receive Date: 20110222
  Receipt Date: 20110215
  Transmission Date: 20110831
  Serious: Yes (Hospitalization, Other)
  Sender: FDA-Public Use
  Company Number: 2009SP021087

PATIENT
  Age: 23 Year
  Sex: Female
  Weight: 49.8957 kg

DRUGS (2)
  1. NUVARING [Suspect]
     Indication: PRODUCT USED FOR UNKNOWN INDICATION
     Dosage: VAG
     Route: 067
     Dates: start: 20050315, end: 20091001
  2. ALBUTEROL [Concomitant]

REACTIONS (12)
  - PERIPHERAL ARTERIAL OCCLUSIVE DISEASE [None]
  - CERVICAL DYSPLASIA [None]
  - TENDONITIS [None]
  - ARTERIAL THROMBOSIS LIMB [None]
  - THORACIC DUCT LIGATION [None]
  - INSOMNIA [None]
  - MOVEMENT DISORDER [None]
  - ABDOMINAL PAIN UPPER [None]
  - DEEP VEIN THROMBOSIS [None]
  - CERVICAL RIB [None]
  - HUMAN PAPILLOMA VIRUS TEST POSITIVE [None]
  - FISTULA [None]
